FAERS Safety Report 6441163-6 (Version None)
Quarter: 2009Q4

REPORT INFORMATION
  Report Type: 
  Country: None (occurrence: None)
  Receive Date: 20091113
  Receipt Date: 20091113
  Transmission Date: 20100525
  Serious: Yes (Death)
  Sender: FDA-Public Use
  Company Number: None

PATIENT
  Age: 18 Year
  Sex: Female
  Weight: 55 kg

DRUGS (1)
  1. ANCOBON [Suspect]
     Dosage: 500MG Q6H PO
     Route: 048
     Dates: start: 20091109, end: 20091110

REACTIONS (4)
  - CARDIO-RESPIRATORY ARREST [None]
  - CHEST PAIN [None]
  - HYPOTENSION [None]
  - VENTRICULAR TACHYCARDIA [None]
